FAERS Safety Report 12988980 (Version 3)
Quarter: 2016Q4

REPORT INFORMATION
  Report Type: Spontaneous
  Country: JP (occurrence: JP)
  Receive Date: 20161201
  Receipt Date: 20161220
  Transmission Date: 20170207
  Serious: Yes (Other)
  Sender: FDA-Public Use
  Company Number: JP-ROCHE-1861189

PATIENT
  Age: 81 Year
  Sex: Male

DRUGS (4)
  1. LUCENTIS [Suspect]
     Active Substance: RANIBIZUMAB
     Indication: AGE-RELATED MACULAR DEGENERATION
     Dosage: 0.05 ML, UNK
     Route: 031
     Dates: start: 200909
  2. VISUDYNE [Suspect]
     Active Substance: VERTEPORFIN
     Indication: POLYPOIDAL CHOROIDAL VASCULOPATHY
     Dosage: UNK
     Route: 065
     Dates: start: 200805
  3. LUCENTIS [Suspect]
     Active Substance: RANIBIZUMAB
     Indication: POLYPOIDAL CHOROIDAL VASCULOPATHY
  4. EYLEA [Concomitant]
     Active Substance: AFLIBERCEPT
     Indication: POLYPOIDAL CHOROIDAL VASCULOPATHY
     Route: 031

REACTIONS (15)
  - Cataract [Unknown]
  - Drug ineffective [Unknown]
  - Angle closure glaucoma [Unknown]
  - Visual impairment [Unknown]
  - Cerebral infarction [Unknown]
  - Dry age-related macular degeneration [Unknown]
  - Retinal detachment [Unknown]
  - Retinal thickening [Unknown]
  - Visual acuity reduced [Unknown]
  - Vitreous haemorrhage [Unknown]
  - Eye pain [Unknown]
  - Anterior chamber collapse [Unknown]
  - Atrial flutter [Unknown]
  - Choroidal haemorrhage [Unknown]
  - Intraocular pressure increased [Recovering/Resolving]

NARRATIVE: CASE EVENT DATE: 20160628
